FAERS Safety Report 20545204 (Version 1)
Quarter: 2022Q1

REPORT INFORMATION
  Report Type: Spontaneous
  Country: US (occurrence: US)
  Receive Date: 20220303
  Receipt Date: 20220303
  Transmission Date: 20220423
  Serious: No
  Sender: FDA-Public Use
  Company Number: US-ALLERGAN-2110596US

PATIENT
  Age: 82 Year
  Sex: Female

DRUGS (3)
  1. RESTASIS [Suspect]
     Active Substance: CYCLOSPORINE
     Indication: Dry eye
     Dosage: 1 GTT, BID
     Route: 047
     Dates: start: 20210304, end: 20210406
  2. unspecified antibiotic drop [Concomitant]
     Indication: Corneal disorder
     Dosage: UNK
     Dates: start: 202103
  3. unspecified antibiotic drop [Concomitant]
     Indication: Eye infection

REACTIONS (3)
  - Ocular discomfort [Unknown]
  - Drug ineffective [Unknown]
  - Product complaint [Unknown]

NARRATIVE: CASE EVENT DATE: 20200301
